FAERS Safety Report 16489146 (Version 1)
Quarter: 2019Q2

REPORT INFORMATION
  Report Type: Spontaneous
  Country: US (occurrence: US)
  Receive Date: 20190628
  Receipt Date: 20190628
  Transmission Date: 20190711
  Serious: No
  Sender: FDA-Public Use
  Company Number: US-ACCORD-067864

PATIENT
  Age: 71 Year
  Sex: Male

DRUGS (1)
  1. CLONAZEPAM ACCORD [Suspect]
     Active Substance: CLONAZEPAM
     Indication: SOMNOLENCE
     Dosage: DOSE: 0.5 MG TAB BID.
     Route: 048

REACTIONS (5)
  - Drug ineffective [Unknown]
  - Tension [Unknown]
  - Off label use [Unknown]
  - Blood pressure increased [Unknown]
  - Nervousness [Unknown]
